FAERS Safety Report 7283819-1 (Version None)
Quarter: 2011Q1

REPORT INFORMATION
  Report Type: 
  Country: None (occurrence: None)
  Receive Date: 20110209
  Receipt Date: 20110207
  Transmission Date: 20110831
  Serious: Yes (Death, Other)
  Sender: FDA-Public Use
  Company Number: CA-PFIZER INC-2010018503

PATIENT
  Age: 47 Year
  Sex: Female
  Weight: 52.154 kg

DRUGS (12)
  1. DILAUDID [Concomitant]
     Dosage: 1 MG, EVERY 4 HRS
     Dates: start: 20070728
  2. TYLENOL EXTRA-STRENGTH [Concomitant]
     Dosage: UNK
  3. TIAZAC [Concomitant]
     Dosage: 240 MG, 1X/DAY
  4. CHAMPIX [Suspect]
     Indication: SMOKING CESSATION THERAPY
     Dosage: UNK
     Dates: start: 20070901
  5. MAVIK [Concomitant]
     Dosage: 2MG, 2 TABLETS IN THE MORNING
     Route: 048
  6. PMS-MIRTAZAPINE [Concomitant]
     Dosage: 15 MG, UNK
  7. APO-ZOPICLONE [Concomitant]
     Dosage: 7.5MG TABLET IN HALF (3.75) MG, DAILY AT BEDTIME
     Route: 048
  8. APO-NAPROXEN [Concomitant]
     Dosage: 300 MG, 2X/DAY
  9. PMS-HYDROCHLOR [Concomitant]
     Dosage: 12.5 MG, 1X/DAY IN THE MORNING WITH MAVIK
  10. APO-BROMAZEPAM [Concomitant]
     Dosage: 3 MG, UNK
  11. PMS-DOCUSATE SODIUM [Concomitant]
     Dosage: 100 MG, 1X/DAY AS NEEDED
  12. PMS-PROCHLORPERAZINE [Concomitant]
     Dosage: 10 MG, 4X/DAY AS NEEDED
     Route: 048

REACTIONS (9)
  - DEATH [None]
  - HEADACHE [None]
  - LISTLESS [None]
  - CRYING [None]
  - NAUSEA [None]
  - TREMOR [None]
  - PERSONALITY CHANGE [None]
  - DEPRESSION [None]
  - INSOMNIA [None]
